FAERS Safety Report 5528663-8 (Version None)
Quarter: 2007Q4

REPORT INFORMATION
  Report Type: 
  Country: None (occurrence: None)
  Receive Date: 20071129
  Receipt Date: 20071122
  Transmission Date: 20080405
  Serious: Yes (Other)
  Sender: FDA-Public Use
  Company Number: PHBS2007JP19124

PATIENT
  Age: 11 Year
  Sex: Female

DRUGS (3)
  1. CYCLOSPORINE [Suspect]
     Indication: DERMATOMYOSITIS
     Route: 065
  2. PREDNISOLONE [Suspect]
     Dosage: 1 MG/KG/DAY
     Route: 065
  3. METHOTREXATE [Suspect]
     Indication: DERMATOMYOSITIS
     Route: 065

REACTIONS (8)
  - ANTI-THYROID ANTIBODY POSITIVE [None]
  - AUTOIMMUNE THYROIDITIS [None]
  - CELL MARKER INCREASED [None]
  - DERMATOMYOSITIS [None]
  - IMMUNE SYSTEM DISORDER [None]
  - INTERSTITIAL LUNG DISEASE [None]
  - SKIN DISORDER [None]
  - VON WILLEBRAND'S FACTOR ANTIGEN INCREASED [None]
